FAERS Safety Report 5368468-4 (Version None)
Quarter: 2007Q2

REPORT INFORMATION
  Report Type: 
  Country: None (occurrence: None)
  Receive Date: 20070625
  Receipt Date: 20070621
  Transmission Date: 20071010
  Serious: Yes (Hospitalization, Other)
  Sender: FDA-Public Use
  Company Number: HQWYE596613JUN07

PATIENT

DRUGS (1)
  1. VENLAFAXIINE HCL [Suspect]
     Dosage: OVERDOSE AMOUNT WAS UNKNOWN
     Route: 048

REACTIONS (4)
  - BLOOD CREATINE PHOSPHOKINASE INCREASED [None]
  - DRUG TOXICITY [None]
  - INTENTIONAL OVERDOSE [None]
  - MYOPATHY [None]
